FAERS Safety Report 5721205-3 (Version None)
Quarter: 2008Q2

REPORT INFORMATION
  Report Type: 
  Country: None (occurrence: None)
  Receive Date: 20080429
  Receipt Date: 20080424
  Transmission Date: 20081010
  Serious: Yes (Death, Life-Threatening, Hospitalization)
  Sender: FDA-Public Use
  Company Number: FR-AVENTIS-200811566FR

PATIENT
  Age: 79 Year
  Sex: Female

DRUGS (12)
  1. TAXOTERE [Suspect]
     Indication: METASTATIC BRONCHIAL CARCINOMA
     Route: 042
     Dates: start: 20080306, end: 20080306
  2. CARBOPLATIN [Suspect]
     Indication: METASTATIC BRONCHIAL CARCINOMA
     Route: 042
     Dates: start: 20080306, end: 20080306
  3. PRACTAZIN [Concomitant]
     Indication: DRUG USE FOR UNKNOWN INDICATION
     Route: 048
  4. ATENOLOL [Concomitant]
     Indication: DRUG USE FOR UNKNOWN INDICATION
     Route: 048
  5. CACIT D3 [Concomitant]
     Indication: DRUG USE FOR UNKNOWN INDICATION
  6. PARACETAMOL [Concomitant]
     Indication: DRUG USE FOR UNKNOWN INDICATION
  7. FORLAX [Concomitant]
     Indication: DRUG USE FOR UNKNOWN INDICATION
  8. KYTRIL                             /01178101/ [Concomitant]
     Route: 042
     Dates: start: 20080306, end: 20080306
  9. LARGACTIL                          /00011901/ [Concomitant]
     Route: 042
     Dates: start: 20080306, end: 20080306
  10. POLARAMINE                         /00043702/ [Concomitant]
     Route: 042
     Dates: start: 20080306, end: 20080306
  11. ZANTAC [Concomitant]
     Route: 042
     Dates: start: 20080306, end: 20080306
  12. SOLU-MEDROL [Concomitant]
     Route: 042
     Dates: start: 20080306, end: 20080306

REACTIONS (2)
  - ARRHYTHMIA [None]
  - ATRIAL FIBRILLATION [None]
